FAERS Safety Report 11688585 (Version 7)
Quarter: 2016Q3

REPORT INFORMATION
  Report Type: Report from Study
  Country: HU (occurrence: HU)
  Receive Date: 20151101
  Receipt Date: 20160802
  Transmission Date: 20161109
  Serious: Yes (Death, Hospitalization)
  Sender: FDA-Public Use
  Company Number: HU-AMGEN-HUNCT2015111570

PATIENT
  Age: 57 Year
  Sex: Male
  Weight: 75 kg

DRUGS (20)
  1. INSUMAN COMB [Concomitant]
     Active Substance: INSULIN NOS
     Dosage: 25:14 UNITS EVERY MORNING AND 10 UNITS EVERY EVENING
  2. ROSUVASTATIN. [Suspect]
     Active Substance: ROSUVASTATIN
     Indication: DYSLIPIDAEMIA
     Dosage: 20 MG, UNK
     Route: 065
     Dates: start: 20140317
  3. THIOCTIC ACID [Concomitant]
     Active Substance: THIOCTIC ACID
     Dosage: 600 MG, UNK
  4. PREFILLED AUTOINJECTOR/PEN [Suspect]
     Active Substance: DEVICE
     Indication: DYSLIPIDAEMIA
     Dosage: UNK
     Route: 058
     Dates: start: 20140401, end: 20150817
  5. CLOPIDOGREL [Concomitant]
     Active Substance: CLOPIDOGREL BISULFATE
     Dosage: 75 MG, QD
  6. FURON [Concomitant]
     Active Substance: FUROSEMIDE
     Dosage: UNK
  7. INSULIN [Concomitant]
     Active Substance: INSULIN NOS
     Dosage: UNK
  8. PANTOPRAZOLE [Concomitant]
     Active Substance: PANTOPRAZOLE SODIUM
     Dosage: 20 MG, BID
  9. ALPRAZOLAM. [Concomitant]
     Active Substance: ALPRAZOLAM
     Dosage: 0.25 MG, QD
  10. THIOGAMMA [Concomitant]
     Active Substance: THIOCTIC ACID
     Dosage: 600 MG, QD
  11. UREGYT [Concomitant]
     Dosage: UNK
  12. VEROSPIRON [Concomitant]
     Active Substance: SPIRONOLACTONE
     Dosage: UNK
  13. BISOPROLOL [Concomitant]
     Active Substance: BISOPROLOL
     Dosage: 2.5 MG, BID
  14. MG [Concomitant]
     Active Substance: MAGNESIUM
     Dosage: UNK UNK, QD
  15. KALDYUM [Concomitant]
     Active Substance: POTASSIUM CHLORIDE
     Dosage: UNK
  16. ALLOPURINOL. [Concomitant]
     Active Substance: ALLOPURINOL
     Dosage: 300 MG, QD
  17. ETACRYNIC ACID [Concomitant]
     Dosage: UNK
  18. AMG 145 [Suspect]
     Active Substance: EVOLOCUMAB
     Indication: DYSLIPIDAEMIA
     Dosage: 140 MG, Q2WK
     Route: 058
     Dates: start: 20140401, end: 20150817
  19. PREGABALIN. [Concomitant]
     Active Substance: PREGABALIN
     Dosage: UNK
  20. BRINALDIX [Concomitant]
     Dosage: UNK

REACTIONS (1)
  - Subacute hepatic failure [Fatal]

NARRATIVE: CASE EVENT DATE: 20151012
